FAERS Safety Report 13931960 (Version 1)
Quarter: 2017Q3

REPORT INFORMATION
  Report Type: Spontaneous
  Country: DE (occurrence: DE)
  Receive Date: 20170904
  Receipt Date: 20170904
  Transmission Date: 20171127
  Serious: Yes (Congenital Anomaly)
  Sender: FDA-Public Use
  Company Number: DE-TORRENT-00007013

PATIENT
  Age: 1 Day
  Sex: Male
  Weight: 3 kg

DRUGS (11)
  1. BEPANTHEN [Concomitant]
     Active Substance: DEXPANTHENOL
  2. INIMUR MYKO [Concomitant]
  3. WICK INHALIERSTIFT N [Concomitant]
  4. LEVETIRACETAM. [Suspect]
     Active Substance: LEVETIRACETAM
  5. VITAMIN D [Concomitant]
     Active Substance: CHOLECALCIFEROL
  6. SERTRALINE [Suspect]
     Active Substance: SERTRALINE HYDROCHLORIDE
  7. EFEROX [Concomitant]
     Active Substance: LEVOTHYROXINE SODIUM
  8. NYSTATIN. [Concomitant]
     Active Substance: NYSTATIN
  9. OXYTOCIN. [Concomitant]
     Active Substance: OXYTOCIN
  10. BALDRIAN [Concomitant]
  11. FEMIBION SCHWANGERSCHAFT 1 [Concomitant]

REACTIONS (2)
  - Foetal exposure during pregnancy [Unknown]
  - Cerebral haemorrhage neonatal [Unknown]

NARRATIVE: CASE EVENT DATE: 20170122
